FAERS Safety Report 4496155-3 (Version None)
Quarter: 2004Q4

REPORT INFORMATION
  Report Type: 
  Country: None (occurrence: None)
  Receive Date: 20041108
  Receipt Date: 20041108
  Transmission Date: 20050328
  Serious: Yes (Other)
  Sender: FDA-Public Use
  Company Number: None

PATIENT
  Age: 78 Year
  Sex: Male
  Weight: 70.3 kg

DRUGS (2)
  1. VISIPAQUE [Suspect]
     Indication: CORONARY ARTERY ATHEROSCLEROSIS
     Dosage: 185 ML IV
     Route: 042
     Dates: start: 20040915
  2. LOCAL ANESTHESIA 1% LIDOCAINE [Concomitant]

REACTIONS (3)
  - ERYTHEMA [None]
  - HYPOTENSION [None]
  - PYREXIA [None]
